FAERS Safety Report 4693289-5 (Version None)
Quarter: 2005Q2

REPORT INFORMATION
  Report Type: 
  Country: None (occurrence: None)
  Receive Date: 20050617
  Receipt Date: 20050405
  Transmission Date: 20051028
  Serious: No
  Sender: FDA-Public Use
  Company Number: JP-GLAXOSMITHKLINE-B0377251A

PATIENT
  Age: 56 Year
  Sex: Male
  Weight: 55 kg

DRUGS (11)
  1. VALTREX [Suspect]
     Indication: HERPES ZOSTER
     Dosage: 500MG PER DAY
     Route: 048
     Dates: start: 20050331, end: 20050404
  2. LOXONIN [Concomitant]
     Indication: HERPES ZOSTER
     Dosage: 180MG PER DAY
     Route: 048
     Dates: start: 20050331, end: 20050404
  3. ITOROL [Concomitant]
     Indication: ANGINA PECTORIS
     Dosage: 40MG PER DAY
     Route: 048
     Dates: start: 20020910
  4. NORVASC [Concomitant]
     Indication: HYPERTENSION
     Dosage: 50MG PER DAY
     Route: 048
     Dates: start: 20020910
  5. ALOSITOL [Concomitant]
     Indication: GOUT
     Dosage: 200MG PER DAY
     Route: 048
     Dates: start: 20020910
  6. ALFAROL [Concomitant]
     Indication: RENAL OSTEODYSTROPHY
     Dosage: .25MCG PER DAY
     Route: 048
     Dates: start: 20020910
  7. PRECIPITATED CALCIUM CARBONATE [Concomitant]
     Dosage: 3000MG PER DAY
     Route: 048
     Dates: start: 20030225
  8. BAYASPIRIN [Concomitant]
     Indication: ANGINA PECTORIS
     Dosage: 100MG PER DAY
     Route: 048
     Dates: start: 20040323
  9. PLETAL [Concomitant]
     Indication: VENOUS STENOSIS
     Dosage: 100MG PER DAY
     Route: 048
     Dates: start: 20040420
  10. GASMOTIN [Concomitant]
     Indication: GASTRITIS
     Dosage: 15MG PER DAY
     Route: 048
     Dates: start: 20041123
  11. SELBEX [Concomitant]
     Dosage: 150MG PER DAY
     Route: 048
     Dates: start: 20050331, end: 20050404

REACTIONS (11)
  - BALANCE DISORDER [None]
  - CONFUSIONAL STATE [None]
  - DIALYSIS [None]
  - DIZZINESS [None]
  - DYSARTHRIA [None]
  - DYSLALIA [None]
  - EMOTIONAL DISTRESS [None]
  - GAIT DISTURBANCE [None]
  - INSOMNIA [None]
  - MENTAL DISORDER [None]
  - NERVOUS SYSTEM DISORDER [None]
